FAERS Safety Report 6749468-6 (Version None)
Quarter: 2010Q2

REPORT INFORMATION
  Report Type: 
  Country: None (occurrence: None)
  Receive Date: 20100527
  Receipt Date: 20100519
  Transmission Date: 20101027
  Serious: Yes (Life-Threatening, Hospitalization)
  Sender: FDA-Public Use
  Company Number: 010048

PATIENT
  Sex: Female
  Weight: 49.8 kg

DRUGS (11)
  1. LEVETIRACETAM [Suspect]
     Indication: EPILEPSY
     Dosage: (1500 MG, BID ORAL), (500 MG BID ORAL),   (2000 MG ORAL)
     Route: 048
     Dates: start: 20070807, end: 20100413
  2. LEVETIRACETAM [Suspect]
     Indication: EPILEPSY
     Dosage: (1500 MG, BID ORAL), (500 MG BID ORAL),   (2000 MG ORAL)
     Route: 048
     Dates: start: 20060919
  3. LEVETIRACETAM [Suspect]
     Indication: EPILEPSY
     Dosage: (1500 MG, BID ORAL), (500 MG BID ORAL),   (2000 MG ORAL)
     Route: 048
     Dates: start: 20070501
  4. LEVETIRACETAM [Suspect]
     Indication: EPILEPSY
     Dosage: (1500 MG, BID ORAL), (500 MG BID ORAL),   (2000 MG ORAL)
     Route: 048
     Dates: start: 20100414
  5. PHENOBARBITAL [Concomitant]
  6. PHENYTOIN [Concomitant]
  7. CLOBAZAM [Concomitant]
  8. TRIAZOLAM [Concomitant]
  9. ETIZOLAM [Concomitant]
  10. DIAZEPAM [Concomitant]
  11. MAGNESIUM OXIDE [Concomitant]

REACTIONS (13)
  - ALTERED STATE OF CONSCIOUSNESS [None]
  - BRAIN HERNIATION [None]
  - BRAIN OEDEMA [None]
  - COUGH [None]
  - DYSPNOEA [None]
  - ENCEPHALOPATHY [None]
  - HAEMODIALYSIS [None]
  - HEPATIC FAILURE [None]
  - HEPATITIS FULMINANT [None]
  - NO THERAPEUTIC RESPONSE [None]
  - RENAL IMPAIRMENT [None]
  - RESPIRATORY FAILURE [None]
  - STATUS EPILEPTICUS [None]
